FAERS Safety Report 14403048 (Version 1)
Quarter: 2018Q1

REPORT INFORMATION
  Report Type: Spontaneous
  Country: US (occurrence: US)
  Receive Date: 20180117
  Receipt Date: 20180117
  Transmission Date: 20180509
  Serious: No
  Sender: FDA-Public Use
  Company Number: None

PATIENT
  Age: 32 Year
  Sex: Female

DRUGS (1)
  1. NEXPLANON [Suspect]
     Active Substance: ETONOGESTREL
     Dates: start: 20170523, end: 20171018

REACTIONS (6)
  - Cellulitis [None]
  - Application site oedema [None]
  - Application site pain [None]
  - Medical device site induration [None]
  - Infection [None]
  - Application site erythema [None]

NARRATIVE: CASE EVENT DATE: 20170523
